FAERS Safety Report 8848136 (Version 5)
Quarter: 2013Q2

REPORT INFORMATION
  Report Type: Spontaneous
  Country: US (occurrence: US)
  Receive Date: 20121018
  Receipt Date: 20130418
  Transmission Date: 20140414
  Serious: Yes (Hospitalization, Other)
  Sender: FDA-Public Use
  Company Number: US-009507513-1202USA00821

PATIENT
  Sex: Male
  Weight: 117.91 kg

DRUGS (3)
  1. FOSAMAX [Suspect]
     Indication: OSTEOPOROSIS
     Dosage: 70 MG, QW
     Route: 048
     Dates: start: 200308, end: 200704
  2. VITAMINS (UNSPECIFIED) [Concomitant]
     Dosage: UNK, QD
     Dates: start: 2002
  3. VITAMIN D (UNSPECIFIED) [Concomitant]
     Dosage: 400 IU, QD
     Dates: start: 2002

REACTIONS (41)
  - Femur fracture [Not Recovered/Not Resolved]
  - Femur fracture [Unknown]
  - Hip arthroplasty [Not Recovered/Not Resolved]
  - Open reduction of fracture [Unknown]
  - Renal failure chronic [Unknown]
  - Transfusion [Unknown]
  - Anaemia postoperative [Unknown]
  - Implantable defibrillator insertion [Unknown]
  - Coronary artery bypass [Unknown]
  - Hypoglycaemia [Unknown]
  - Renal failure [Unknown]
  - Diabetes mellitus inadequate control [Unknown]
  - Renal failure [Unknown]
  - Knee arthroplasty [Unknown]
  - Cardiac disorder [Unknown]
  - Type 2 diabetes mellitus [Unknown]
  - Cardiac disorder [Unknown]
  - Osteonecrosis [Unknown]
  - Knee operation [Unknown]
  - Bone disorder [Unknown]
  - Hyperlipidaemia [Unknown]
  - Temporal arteritis [Recovering/Resolving]
  - Weight increased [Unknown]
  - Osteoarthritis [Unknown]
  - Neuropathy peripheral [Unknown]
  - Polyneuropathy [Unknown]
  - Posture abnormal [Unknown]
  - Nervous system disorder [Unknown]
  - Groin pain [Unknown]
  - Muscle strain [Unknown]
  - Spondylolisthesis [Unknown]
  - Spinal osteoarthritis [Unknown]
  - Lumbar spinal stenosis [Unknown]
  - Cardiac failure congestive [Unknown]
  - Nausea [Unknown]
  - Gastrooesophageal reflux disease [Unknown]
  - Vomiting [Unknown]
  - Malaise [Unknown]
  - Nausea [Unknown]
  - Gastritis [Unknown]
  - Drug ineffective [Unknown]
